FAERS Safety Report 21362432 (Version 2)
Quarter: 2024Q4

REPORT INFORMATION
  Report Type: Report from Study
  Country: US (occurrence: US)
  Receive Date: 20220922
  Receipt Date: 20241106
  Transmission Date: 20250114
  Serious: No
  Sender: ROCHE
  Company Number: US-ROCHE-3184007

PATIENT
  Age: 69 Year
  Sex: Female

DRUGS (1)
  1. OCREVUS [Suspect]
     Active Substance: OCRELIZUMAB
     Indication: Multiple sclerosis
     Dosage: 300 MG IV ONCE IN 2 WEEKS, THEN 600MG ONCE IN 6 MONTHS. DATE OF TREATMENT: 02-MAY-2019
     Route: 042
     Dates: start: 20171206, end: 20240411

REACTIONS (4)
  - COVID-19 [Unknown]
  - Cardiac valve disease [Not Recovered/Not Resolved]
  - Infection [Unknown]
  - Illness [Unknown]

NARRATIVE: CASE EVENT DATE: 20220823
